FAERS Safety Report 14577182 (Version 2)
Quarter: 2018Q2

REPORT INFORMATION
  Report Type: Spontaneous
  Country: US (occurrence: US)
  Receive Date: 20180227
  Receipt Date: 20180521
  Transmission Date: 20180711
  Serious: No
  Sender: FDA-Public Use
  Company Number: US-PFIZER INC-2018054025

PATIENT
  Age: 42 Year
  Sex: Female
  Weight: 75 kg

DRUGS (31)
  1. CELEXA [Concomitant]
     Active Substance: CITALOPRAM HYDROBROMIDE
     Dosage: 20 MG, UNK
     Dates: start: 20161201, end: 20170805
  2. VALIUM [Concomitant]
     Active Substance: DIAZEPAM
     Dosage: 10 MG, UNK
     Dates: start: 20160720, end: 20170728
  3. LOPRESSOR [Concomitant]
     Active Substance: METOPROLOL TARTRATE
     Dosage: 25 MG, UNK
     Dates: start: 20161027, end: 20170805
  4. PERCOCET [Concomitant]
     Active Substance: ACETAMINOPHEN\OXYCODONE HYDROCHLORIDE
     Dosage: UNK
     Dates: start: 20160722, end: 20170810
  5. DICYCLOMINE [Concomitant]
     Active Substance: DICYCLOMINE HYDROCHLORIDE
     Dosage: 20 MG, UNK
  6. BENTYL [Concomitant]
     Active Substance: DICYCLOMINE HYDROCHLORIDE
     Dosage: 20 MG, UNK
     Dates: start: 20160408, end: 20170423
  7. NORCO [Concomitant]
     Active Substance: ACETAMINOPHEN\HYDROCODONE BITARTRATE
     Dosage: UNK
     Dates: start: 20160204, end: 20161101
  8. ZOFRAN [Concomitant]
     Active Substance: ONDANSETRON HYDROCHLORIDE
     Dosage: 8 MG, UNK
     Dates: start: 20160208, end: 20170524
  9. CARBOPLATIN. [Concomitant]
     Active Substance: CARBOPLATIN
     Indication: BREAST CANCER
     Dosage: 6 CYCLES
     Dates: start: 20160211, end: 20160707
  10. PHENERGAN [Concomitant]
     Active Substance: PROMETHAZINE HYDROCHLORIDE
     Dosage: 25 MG, UNK
     Dates: start: 20160720, end: 20170810
  11. TAMOXIFEN [Concomitant]
     Active Substance: TAMOXIFEN
     Indication: HORMONE REPLACEMENT THERAPY
     Dosage: UNK
     Dates: start: 20161201
  12. DOCETAXEL. [Suspect]
     Active Substance: DOCETAXEL
     Indication: BREAST CANCER FEMALE
     Dosage: 1 MG, CYCLIC (EVERY THREE WEEKS, 6 CYCLE)
     Dates: start: 20160211, end: 20160907
  13. COZAAR [Concomitant]
     Active Substance: LOSARTAN POTASSIUM
     Dosage: 100 MG, UNK
     Dates: start: 20160219, end: 20160720
  14. PERJETA HERCEPTIN [Concomitant]
     Indication: BREAST CANCER
     Dosage: UNK
     Dates: start: 20160211, end: 20160707
  15. FLEXERIL [Concomitant]
     Active Substance: CYCLOBENZAPRINE HYDROCHLORIDE
     Dosage: 10 MG, UNK
     Dates: start: 20160706, end: 20160818
  16. PROTONIX [Concomitant]
     Active Substance: PANTOPRAZOLE SODIUM
     Dosage: 40 MG, UNK
     Dates: start: 20160720, end: 20170805
  17. DYRENIUM [Concomitant]
     Active Substance: TRIAMTERENE
     Dosage: UNK
     Dates: start: 20160219, end: 20160620
  18. PARAPLATIN [Concomitant]
     Active Substance: CARBOPLATIN
     Indication: CHEMOTHERAPY
     Dosage: UNK
  19. HERCEPTIN [Concomitant]
     Active Substance: TRASTUZUMAB
     Indication: BREAST CANCER
     Dosage: UNK
     Dates: start: 20160727, end: 20161020
  20. WELLBUTRIN [Concomitant]
     Active Substance: BUPROPION HYDROCHLORIDE
     Dosage: 150 MG, UNK
     Dates: start: 20170130, end: 20170423
  21. FLEXERIL [Concomitant]
     Active Substance: CYCLOBENZAPRINE HYDROCHLORIDE
     Dosage: UNK
     Dates: start: 20161004, end: 20170810
  22. SOLTAMOX [Concomitant]
     Active Substance: TAMOXIFEN CITRATE
     Dosage: 20 MG, UNK
     Dates: start: 20161201, end: 20170724
  23. ULTRAM [Concomitant]
     Active Substance: TRAMADOL HYDROCHLORIDE
     Dosage: 50 MG, UNK
     Dates: start: 20160908, end: 20170810
  24. DESYREL [Concomitant]
     Active Substance: TRAZODONE HYDROCHLORIDE
     Dosage: 100 MG, UNK
     Dates: start: 20160720, end: 20170806
  25. AMBIEN [Concomitant]
     Active Substance: ZOLPIDEM TARTRATE
     Dosage: 10 MG, UNK
     Dates: start: 20160302, end: 20170728
  26. EMEND TRIPACK [Concomitant]
  27. DOCETAXEL SANDOZ [Suspect]
     Active Substance: DOCETAXEL
     Indication: BREAST CANCER FEMALE
     Dosage: 1 MG, CYCLIC (EVERY THREE WEEKS, 6 CYCLE)
     Dates: start: 20160211, end: 20160907
  28. VICODIN [Concomitant]
     Active Substance: ACETAMINOPHEN\HYDROCODONE BITARTRATE
     Dosage: UNK
     Dates: start: 20160204, end: 20161101
  29. NOLVADEX [Concomitant]
     Active Substance: TAMOXIFEN CITRATE
     Dosage: 20 MG, UNK
     Dates: start: 20161201, end: 20170724
  30. ALBUTEROL. [Concomitant]
     Active Substance: ALBUTEROL
     Dosage: 90 MCG, UNK
     Dates: start: 20161128, end: 20170423
  31. GABAPENTIN. [Concomitant]
     Active Substance: GABAPENTIN
     Dosage: 300 MG, UNK

REACTIONS (4)
  - Depression [Unknown]
  - Anxiety [Unknown]
  - Madarosis [Not Recovered/Not Resolved]
  - Alopecia [Not Recovered/Not Resolved]

NARRATIVE: CASE EVENT DATE: 20160601
